FAERS Safety Report 14853875 (Version 1)
Quarter: 2018Q2

REPORT INFORMATION
  Report Type: Spontaneous
  Country: US (occurrence: US)
  Receive Date: 20180507
  Receipt Date: 20180507
  Transmission Date: 20180711
  Serious: Yes (Other)
  Sender: FDA-Public Use
  Company Number: US-TEVA-2018-US-888933

PATIENT
  Age: 50 Year
  Sex: Female

DRUGS (1)
  1. ESTRADIOL VALERATE. [Suspect]
     Active Substance: ESTRADIOL VALERATE
     Indication: DRUG THERAPY
     Route: 065

REACTIONS (9)
  - Arthralgia [Unknown]
  - Condition aggravated [Unknown]
  - Swelling [Unknown]
  - Anaphylactic reaction [Unknown]
  - Swollen tongue [Unknown]
  - Peripheral swelling [Unknown]
  - Pruritus generalised [Unknown]
  - Burning sensation [Unknown]
  - Bedridden [Unknown]
